FAERS Safety Report 8875745 (Version 1)
Quarter: 2012Q4

REPORT INFORMATION
  Report Type: 
  Country: US (occurrence: US)
  Receive Date: 20121023
  Receipt Date: 20121023
  Transmission Date: 20130627
  Serious: Yes (Other)
  Sender: FDA-Public Use
  Company Number: PHEH2012US020615

PATIENT
  Sex: Male

DRUGS (4)
  1. RECLAST [Suspect]
     Route: 042
     Dates: start: 201011
  2. FISH OIL [Concomitant]
  3. LYRICA [Concomitant]
     Indication: SLEEP DISORDER
  4. CALCIUM WITH VITAMIN D [Concomitant]

REACTIONS (4)
  - Osteonecrosis [Unknown]
  - Arthralgia [Unknown]
  - Pain in extremity [Unknown]
  - Hypoaesthesia [Unknown]
